FAERS Safety Report 9601629 (Version 1)
Quarter: 2013Q4

REPORT INFORMATION
  Report Type: Spontaneous
  Country: US (occurrence: US)
  Receive Date: 20131007
  Receipt Date: 20131007
  Transmission Date: 20140711
  Serious: Yes (Other)
  Sender: FDA-Public Use
  Company Number: US-BRISTOL-MYERS SQUIBB COMPANY-19477173

PATIENT
  Age: 3 Decade
  Sex: Male
  Weight: 158.73 kg

DRUGS (2)
  1. BYDUREON 2MG SUSPENSION [Suspect]
     Indication: TYPE 2 DIABETES MELLITUS
     Route: 058
     Dates: start: 201309, end: 201309
  2. NOVOLOG [Concomitant]
     Route: 058
     Dates: start: 201309, end: 201309

REACTIONS (2)
  - Lip swelling [Unknown]
  - Glycosylated haemoglobin increased [Unknown]
